FAERS Safety Report 21022191 (Version 3)
Quarter: 2022Q3

REPORT INFORMATION
  Report Type: Spontaneous
  Country: JP (occurrence: JP)
  Receive Date: 20220629
  Receipt Date: 20220901
  Transmission Date: 20221027
  Serious: Yes (Hospitalization, Other)
  Sender: FDA-Public Use
  Company Number: JP-GLAXOSMITHKLINE-JP2022JPN081461

PATIENT

DRUGS (4)
  1. TRELEGY ELLIPTA [Suspect]
     Active Substance: FLUTICASONE FUROATE\UMECLIDINIUM BROMIDE\VILANTEROL TRIFENATATE
     Indication: Asthma
     Dosage: 200 ?G, QD 1 INHALATION/DOSE
     Route: 055
     Dates: start: 20210330
  2. TRELEGY ELLIPTA [Suspect]
     Active Substance: FLUTICASONE FUROATE\UMECLIDINIUM BROMIDE\VILANTEROL TRIFENATATE
     Indication: Asthma-chronic obstructive pulmonary disease overlap syndrome
  3. RABEPRAZOLE SODIUM TABLET [Concomitant]
     Indication: Gastrooesophageal reflux disease
     Dosage: 10 MG/DAY
     Route: 048
     Dates: start: 20220519
  4. DAIPHEN TABLET [Concomitant]
     Indication: Antifungal prophylaxis
     Dosage: 1 DF/DAY, TWICE WEEKLY
     Route: 048
     Dates: start: 20220519

REACTIONS (10)
  - Pneumonia [Recovering/Resolving]
  - Organising pneumonia [Recovering/Resolving]
  - Cough [Recovering/Resolving]
  - Productive cough [Recovering/Resolving]
  - Dyspnoea [Recovering/Resolving]
  - Body temperature abnormal [Recovering/Resolving]
  - Pyrexia [Recovered/Resolved]
  - Upper respiratory tract infection [Recovering/Resolving]
  - Product use in unapproved indication [Unknown]
  - Off label use [Unknown]

NARRATIVE: CASE EVENT DATE: 20220511
